FAERS Safety Report 7994041-5 (Version None)
Quarter: 2011Q4

REPORT INFORMATION
  Report Type: 
  Country: None (occurrence: None)
  Receive Date: 20111215
  Receipt Date: 20111202
  Transmission Date: 20120403
  Serious: Yes (Life-Threatening)
  Sender: FDA-Public Use
  Company Number: 1126527

PATIENT
  Age: 62 Year
  Sex: Female
  Weight: 50 kg

DRUGS (2)
  1. LEUCOVORIN CALCIUM [Concomitant]
  2. IRINOTECAN HYDROCHLORIDE [Suspect]
     Indication: COLON CANCER
     Dosage: I    260 MILLIGRAMS, NTRAVENOUS DRIP
     Route: 041
     Dates: start: 20111102

REACTIONS (4)
  - INFUSION RELATED REACTION [None]
  - FEELING HOT [None]
  - MALAISE [None]
  - ERYTHEMA [None]
